FAERS Safety Report 13746618 (Version 6)
Quarter: 2018Q3

REPORT INFORMATION
  Report Type: Spontaneous
  Country: CA (occurrence: CA)
  Receive Date: 20170712
  Receipt Date: 20180809
  Transmission Date: 20181010
  Serious: Yes (Other)
  Sender: FDA-Public Use
  Company Number: CA-PFIZER INC-2017214291

PATIENT
  Age: 61 Year
  Sex: Male
  Weight: 70 kg

DRUGS (6)
  1. XELJANZ [Suspect]
     Active Substance: TOFACITINIB CITRATE
     Indication: RHEUMATOID ARTHRITIS
     Dosage: 5 MG, 2X/DAY
     Route: 048
     Dates: start: 20170508
  2. SULFASALAZINE. [Concomitant]
     Active Substance: SULFASALAZINE
     Indication: RHEUMATOID ARTHRITIS
     Dosage: UNK
     Dates: start: 201701
  3. NAPROXEN. [Concomitant]
     Active Substance: NAPROXEN
     Dosage: 2?3 TIMES PER WEEK
  4. ALENDRONATE [Concomitant]
     Active Substance: ALENDRONATE SODIUM
     Dosage: UNK
  5. RANITIDINE. [Concomitant]
     Active Substance: RANITIDINE
     Dosage: UNK
  6. METHOTREXATE. [Concomitant]
     Active Substance: METHOTREXATE
     Indication: RHEUMATOID ARTHRITIS
     Dosage: UNK UNK, WEEKLY
     Route: 048
     Dates: start: 201709

REACTIONS (8)
  - Peripheral swelling [Unknown]
  - Dysgeusia [Unknown]
  - Limb crushing injury [Unknown]
  - Drug effect incomplete [Recovering/Resolving]
  - Impaired healing [Unknown]
  - Nausea [Unknown]
  - Immune system disorder [Unknown]
  - Ageusia [Not Recovered/Not Resolved]

NARRATIVE: CASE EVENT DATE: 2017
